FAERS Safety Report 8110646-5 (Version None)
Quarter: 2012Q1

REPORT INFORMATION
  Report Type: 
  Country: None (occurrence: None)
  Receive Date: 20120203
  Receipt Date: 20120131
  Transmission Date: 20120608
  Serious: Yes (Hospitalization)
  Sender: FDA-Public Use
  Company Number: US-BRACCO-007472

PATIENT
  Sex: Male

DRUGS (1)
  1. ISOVUE-M 200 [Suspect]
     Indication: SPINAL MYELOGRAM
     Dosage: LOT AA1P055A AND AA1P0554A ADMINISTERED
     Dates: start: 20120119, end: 20120119

REACTIONS (1)
  - ENCEPHALOPATHY [None]
